FAERS Safety Report 10900250 (Version 1)
Quarter: 2015Q1

REPORT INFORMATION
  Report Type: Report from Study
  Country: ID (occurrence: ID)
  Receive Date: 20150310
  Receipt Date: 20150310
  Transmission Date: 20150721
  Serious: Yes (Death, Life-Threatening, Hospitalization)
  Sender: FDA-Public Use
  Company Number: ID-ROCHE-671906

PATIENT
  Age: 16 Year
  Sex: Female
  Weight: 55 kg

DRUGS (4)
  1. TOCILIZUMAB [Suspect]
     Active Substance: TOCILIZUMAB
     Dosage: PERMANENTLY DISCONTINUED.
     Route: 042
  2. TOCILIZUMAB [Suspect]
     Active Substance: TOCILIZUMAB
     Indication: JUVENILE IDIOPATHIC ARTHRITIS
     Dosage: FORM: INFUSION
     Route: 042
  3. FROBEN [Concomitant]
     Active Substance: FLURBIPROFEN
     Dosage: FREQUENCY: AS REQUIRED.
     Route: 065
  4. TOCILIZUMAB [Suspect]
     Active Substance: TOCILIZUMAB
     Indication: JUVENILE IDIOPATHIC ARTHRITIS
     Dosage: RECEIVED IN WEEK 1-12 ONLY.
     Route: 042

REACTIONS (4)
  - Histiocytosis haematophagic [Recovered/Resolved]
  - Cardiac failure [Recovered/Resolved]
  - Pulmonary veno-occlusive disease [Recovered/Resolved with Sequelae]
  - Hyperkalaemia [Fatal]

NARRATIVE: CASE EVENT DATE: 20091123
